FAERS Safety Report 24276282 (Version 1)
Quarter: 2024Q3

REPORT INFORMATION
  Report Type: Spontaneous
  Country: GB (occurrence: GB)
  Receive Date: 20240903
  Receipt Date: 20240903
  Transmission Date: 20241017
  Serious: Yes (Other)
  Sender: Carnegie Pharmaceuticals
  Company Number: GB-CARNEGIE-000025

PATIENT
  Age: 67 Year
  Sex: Male

DRUGS (2)
  1. LATANOPROST [Suspect]
     Active Substance: LATANOPROST
     Indication: Open angle glaucoma
     Dosage: EYE DROPS
     Route: 047
  2. LATANOPROST [Suspect]
     Active Substance: LATANOPROST
     Indication: Cataract
     Dosage: EYE DROPS
     Route: 047

REACTIONS (4)
  - Ocular surface disease [Recovered/Resolved]
  - Treatment noncompliance [Unknown]
  - Visual field defect [Recovered/Resolved]
  - Intraocular pressure fluctuation [Recovered/Resolved]
